FAERS Safety Report 9032205 (Version 1)
Quarter: 2013Q1

REPORT INFORMATION
  Report Type: Report from Study
  Country: BE (occurrence: BE)
  Receive Date: 20130122
  Receipt Date: 20130122
  Transmission Date: 20140127
  Serious: Yes (Hospitalization)
  Sender: FDA-Public Use
  Company Number: BE-MERCK-1301BEL006169

PATIENT
  Age: 65 Year
  Sex: Female
  Weight: 71 kg

DRUGS (15)
  1. TEMOZOLOMIDE [Suspect]
     Indication: GLIOBLASTOMA
     Dosage: 130 MG, QD
     Route: 048
     Dates: start: 20091203
  2. BEVACIZUMAB [Suspect]
     Indication: GLIOBLASTOMA
     Dosage: VIAL 1 IN 15 DAYS
     Route: 042
     Dates: start: 20091203
  3. KEPPRA [Concomitant]
     Dosage: 1 G, UNK
     Dates: start: 20090927
  4. COVERSYL (PERINDOPRIL ERBUMINE) [Concomitant]
     Dosage: 2.5 MG, UNK
     Dates: start: 2004
  5. CHLORTHALIDONE [Concomitant]
     Dosage: 25 MG, UNK
     Dates: start: 2004, end: 20100208
  6. ZOCOR [Concomitant]
     Dosage: 20 MG, UNK
     Dates: start: 2004
  7. D-CURE [Concomitant]
     Dosage: TDD: 25.000 U
     Dates: start: 1993
  8. LEUCOVORIN CALCIUM [Concomitant]
     Dosage: 1 MG, UNK
     Dates: start: 1993
  9. FEMOSTON [Concomitant]
     Dosage: 1 MG, UNK
     Dates: start: 1993
  10. NOVABAN [Concomitant]
     Dosage: 5 MG, UNK
     Dates: start: 20091203, end: 20100115
  11. OXYBUTYNIN [Concomitant]
     Dosage: UNK
     Dates: start: 20091203, end: 20100115
  12. PARACETAMOL [Concomitant]
     Dosage: 1 DF, PRN
     Dates: start: 20090819
  13. ZOLPIDEM TARTRATE [Concomitant]
  14. BACTRIM FORTE [Concomitant]
     Dosage: UNK
     Dates: start: 201001, end: 20100130
  15. POTASSIUM CHLORIDE [Concomitant]

REACTIONS (2)
  - Pulmonary embolism [Recovering/Resolving]
  - Sepsis [Recovered/Resolved]
